FAERS Safety Report 11364311 (Version 2)
Quarter: 2016Q3

REPORT INFORMATION
  Report Type: Spontaneous
  Country: None (occurrence: US)
  Receive Date: 20150811
  Receipt Date: 20160816
  Transmission Date: 20161109
  Serious: No
  Sender: FDA-Public Use
  Company Number: US-ENDO PHARMACEUTICALS INC.-2014ZX000340

PATIENT
  Sex: Female

DRUGS (1)
  1. SUMAVEL DOSEPRO [Suspect]
     Active Substance: SUMATRIPTAN SUCCINATE
     Indication: PRODUCT USED FOR UNKNOWN INDICATION
     Route: 058

REACTIONS (5)
  - Injection site pain [Not Recovered/Not Resolved]
  - Drug administered at inappropriate site [Recovered/Resolved]
  - Accidental exposure to product [Recovered/Resolved]
  - Device malfunction [Recovered/Resolved]
  - Injection site hypoaesthesia [Not Recovered/Not Resolved]

NARRATIVE: CASE EVENT DATE: 20141124
